FAERS Safety Report 25050260 (Version 5)
Quarter: 2025Q2

REPORT INFORMATION
  Report Type: Report from Study
  Country: US (occurrence: US)
  Receive Date: 20250307
  Receipt Date: 20250610
  Transmission Date: 20250717
  Serious: Yes (Hospitalization, Other)
  Sender: ACADIA PHARMACEUTICALS
  Company Number: US-ACADIA PHARMACEUTICALS INC.-ACA-2025-TRF-002323

PATIENT

DRUGS (4)
  1. DAYBUE [Suspect]
     Active Substance: TROFINETIDE
     Indication: Rett syndrome
     Dosage: 25 MILLILITER, BID
     Route: 048
  2. DAYBUE [Suspect]
     Active Substance: TROFINETIDE
     Dosage: 5 MILLILITER, BID
     Route: 065
     Dates: start: 20240719
  3. DAYBUE [Suspect]
     Active Substance: TROFINETIDE
     Dosage: 20 MILLILITER, BID
     Route: 048
  4. KEPPRA [Concomitant]
     Active Substance: LEVETIRACETAM
     Indication: Seizure
     Dosage: UNK, BID (100 MG/ML)

REACTIONS (11)
  - Pulmonary oedema [Not Recovered/Not Resolved]
  - Aspiration [Recovered/Resolved]
  - Seizure [Recovered/Resolved]
  - Body temperature increased [Recovered/Resolved]
  - Asthenia [Unknown]
  - Productive cough [Unknown]
  - Adenoviral upper respiratory infection [Unknown]
  - Gastrooesophageal reflux disease [Unknown]
  - Poor quality sleep [Not Recovered/Not Resolved]
  - Vomiting [Unknown]
  - Underdose [Not Recovered/Not Resolved]
